FAERS Safety Report 25064316 (Version 2)
Quarter: 2025Q2

REPORT INFORMATION
  Report Type: Report from Study
  Country: GB (occurrence: GB)
  Receive Date: 20250311
  Receipt Date: 20250408
  Transmission Date: 20250717
  Serious: Yes (Disabling, Other)
  Sender: IPSEN
  Company Number: GB-IPSEN Group, Research and Development-2025-05432

PATIENT
  Sex: Female

DRUGS (1)
  1. LANREOTIDE ACETATE [Suspect]
     Active Substance: LANREOTIDE ACETATE
     Indication: Product used for unknown indication
     Route: 065

REACTIONS (10)
  - Vomiting [Not Recovered/Not Resolved]
  - Hyperglycaemia [Recovering/Resolving]
  - Lower respiratory tract infection [Recovered/Resolved]
  - Chest pain [Not Recovered/Not Resolved]
  - Fatigue [Not Recovered/Not Resolved]
  - Asthenia [Not Recovered/Not Resolved]
  - Rales [Not Recovered/Not Resolved]
  - Decreased appetite [Recovering/Resolving]
  - Hypoglycaemia [Recovering/Resolving]
  - Urinary tract infection [Recovered/Resolved]
